FAERS Safety Report 25619243 (Version 2)
Quarter: 2025Q3

REPORT INFORMATION
  Report Type: Spontaneous
  Country: JP (occurrence: JP)
  Receive Date: 20250729
  Receipt Date: 20250828
  Transmission Date: 20251021
  Serious: Yes (Hospitalization)
  Sender: CLINIGEN
  Company Number: JP-CLINIGEN-CLI2025000113

PATIENT

DRUGS (1)
  1. FOSCAVIR [Suspect]
     Active Substance: FOSCARNET SODIUM
     Indication: Cytomegalovirus infection
     Route: 065

REACTIONS (2)
  - Hospitalisation [Unknown]
  - Physical deconditioning [Unknown]
